FAERS Safety Report 15324221 (Version 1)
Quarter: 2018Q3

REPORT INFORMATION
  Report Type: Report from Study
  Country: ES (occurrence: ES)
  Receive Date: 20180828
  Receipt Date: 20180828
  Transmission Date: 20181010
  Serious: Yes (Death, Hospitalization, Other)
  Sender: FDA-Public Use
  Company Number: ES-TEVA-2018-ES-947821

PATIENT
  Age: 37 Year
  Sex: Female
  Weight: 58 kg

DRUGS (6)
  1. OXICODONA [Concomitant]
     Active Substance: OXYCODONE
     Dosage: 6 MG/ML STRENGTH
     Route: 048
     Dates: start: 20160704
  2. PACLITAXEL. [Suspect]
     Active Substance: PACLITAXEL
     Indication: BREAST CANCER
     Dosage: 80 MG/M2, 6 MG/ML STRENGTH VIAL
     Route: 042
     Dates: start: 20160719, end: 20160802
  3. IBUPROFEN. [Concomitant]
     Active Substance: IBUPROFEN
     Dosage: 6 MG/ML STRENGTH
     Route: 048
     Dates: start: 20160704
  4. BEVACIZUMAB. [Suspect]
     Active Substance: BEVACIZUMAB
     Indication: BREAST CANCER
     Dosage: 5 MG/KG, 25 MG/ML STRENGTH VIAL
     Route: 042
     Dates: start: 20160719, end: 20160802
  5. TRANEXAMIC ACID. [Concomitant]
     Active Substance: TRANEXAMIC ACID
     Dosage: 6 MG/ML STRENGTH
     Route: 048
     Dates: start: 20160805
  6. FENTANYL. [Concomitant]
     Active Substance: FENTANYL
     Dosage: 6 MG/ML STRENGTH
     Route: 048
     Dates: start: 20160704

REACTIONS (10)
  - Alanine aminotransferase increased [Not Recovered/Not Resolved]
  - Asthenia [Not Recovered/Not Resolved]
  - Periodontal disease [Recovered/Resolved]
  - Hepatic failure [Unknown]
  - Aspartate aminotransferase increased [Not Recovered/Not Resolved]
  - Vomiting [Not Recovered/Not Resolved]
  - Platelet count decreased [Not Recovered/Not Resolved]
  - Periodontal disease [Not Recovered/Not Resolved]
  - Hepatic function abnormal [Fatal]
  - Blood bilirubin increased [Not Recovered/Not Resolved]

NARRATIVE: CASE EVENT DATE: 20160801
